FAERS Safety Report 9550707 (Version 2)
Quarter: 2014Q4

REPORT INFORMATION
  Report Type: Report from Study
  Country: US (occurrence: US)
  Receive Date: 20130924
  Receipt Date: 20141113
  Transmission Date: 20150529
  Serious: Yes (Other)
  Sender: FDA-Public Use
  Company Number: US-SANOFI-AVENTIS-2013SA018748

PATIENT
  Age: 35 Year
  Sex: Female

DRUGS (2)
  1. AUBAGIO [Suspect]
     Active Substance: TERIFLUNOMIDE
     Indication: MULTIPLE SCLEROSIS
     Route: 048
     Dates: start: 20120101, end: 20141027
  2. ACCUTANE [Concomitant]
     Active Substance: ISOTRETINOIN
     Dates: end: 201304

REACTIONS (12)
  - Dyshidrotic eczema [Not Recovered/Not Resolved]
  - Lip dry [Not Recovered/Not Resolved]
  - Fatigue [Unknown]
  - Cognitive disorder [Unknown]
  - Gait disturbance [Unknown]
  - Lymphocyte count decreased [Unknown]
  - Abdominal pain upper [Unknown]
  - Drug dose omission [Unknown]
  - Hepatic enzyme increased [Unknown]
  - Eczema [Not Recovered/Not Resolved]
  - Condition aggravated [Unknown]
  - Hepatitis [Unknown]

NARRATIVE: CASE EVENT DATE: 201301
